FAERS Safety Report 7135514-7 (Version None)
Quarter: 2010Q4

REPORT INFORMATION
  Report Type: 
  Country: None (occurrence: None)
  Receive Date: 20101119
  Receipt Date: 20101103
  Transmission Date: 20110411
  Serious: Yes (Other)
  Sender: FDA-Public Use
  Company Number: GER/UKI/10/0016589

PATIENT
  Age: 50 Year
  Sex: Female

DRUGS (8)
  1. RISPERIDONE [Suspect]
     Indication: ANXIETY
     Dosage: 0.5 MG AS 3 TABS AT MORNING AND 3 TABS AT NIGHT
  2. RISPERIDONE [Suspect]
     Indication: HALLUCINATION, AUDITORY
     Dosage: 0.5 MG AS 3 TABS AT MORNING AND 3 TABS AT NIGHT
  3. AMITRIPTYLINE HYDROCHLORIDE [Concomitant]
  4. CETIRIZINE HCL [Concomitant]
  5. DIAZEPAM [Concomitant]
  6. OMEPRAZOLE [Concomitant]
  7. PROGYNOVA (ESTRADIOL) [Concomitant]
  8. ZOPICLONE (ZOPICLONE) [Concomitant]

REACTIONS (6)
  - ANXIETY [None]
  - CONDITION AGGRAVATED [None]
  - DRUG INEFFECTIVE [None]
  - HALLUCINATION, AUDITORY [None]
  - ILLUSION [None]
  - PRODUCT SUBSTITUTION ISSUE [None]
